FAERS Safety Report 13278348 (Version 3)
Quarter: 2017Q3

REPORT INFORMATION
  Report Type: Spontaneous
  Country: US (occurrence: US)
  Receive Date: 20170228
  Receipt Date: 20170707
  Transmission Date: 20171127
  Serious: Yes (Death)
  Sender: FDA-Public Use
  Company Number: US-GE HEALTHCARE LIFE SCIENCES-VISP-PR-1610S-0618

PATIENT
  Age: 77 Year
  Sex: Male
  Weight: 102.1 kg

DRUGS (9)
  1. HYDRALAZINE [Concomitant]
     Active Substance: HYDRALAZINE HYDROCHLORIDE
     Dosage: , SINGLE
     Route: 042
     Dates: start: 20160517, end: 20160517
  2. MIDAZOLAM [Concomitant]
     Active Substance: MIDAZOLAM HYDROCHLORIDE
     Dosage: , SINGLE
     Route: 042
     Dates: start: 20160517, end: 20160517
  3. FENTANYL. [Concomitant]
     Active Substance: FENTANYL
     Dosage: , SINGLE
     Route: 042
     Dates: start: 20160517, end: 20160517
  4. LIDOCAINE. [Concomitant]
     Active Substance: LIDOCAINE
     Dosage: , SINGLE
     Route: 058
     Dates: start: 20160517, end: 20160517
  5. SODIUM BICARBONATE. [Concomitant]
     Active Substance: SODIUM BICARBONATE
     Dosage: , SINGLE
     Dates: start: 20160517, end: 20160517
  6. SODIUM CHLORIDE. [Concomitant]
     Active Substance: SODIUM CHLORIDE
     Dosage: , SINGLE
     Dates: start: 20160517, end: 20160517
  7. VISIPAQUE [Suspect]
     Active Substance: IODIXANOL
     Indication: CARDIAC STRESS TEST ABNORMAL
     Dosage: 110 ML, SINGLE
     Route: 013
     Dates: start: 20160517, end: 20160517
  8. ENALAPRIL [Concomitant]
     Active Substance: ENALAPRIL
     Indication: HYPERTENSION
     Dosage: ,
     Route: 048
     Dates: end: 20160517
  9. SIMVASTATIN. [Concomitant]
     Active Substance: SIMVASTATIN
     Indication: HYPERLIPIDAEMIA
     Dosage: ,
     Route: 048
     Dates: end: 20160516

REACTIONS (1)
  - Cardiac arrest [Fatal]

NARRATIVE: CASE EVENT DATE: 20160517
